FAERS Safety Report 5900040-7 (Version None)
Quarter: 2008Q3

REPORT INFORMATION
  Report Type: 
  Country: None (occurrence: None)
  Receive Date: 20080926
  Receipt Date: 20080917
  Transmission Date: 20090109
  Serious: Yes (Other)
  Sender: FDA-Public Use
  Company Number: JP-AVENTIS-200812933JP

PATIENT
  Age: 67 Year
  Sex: Male

DRUGS (3)
  1. FUROSEMIDE [Suspect]
     Dates: end: 20060401
  2. CANDESARTAN [Suspect]
     Dates: end: 20060401
  3. DILAZEP DIHYDROCHLORIDE [Suspect]
     Dates: end: 20060401

REACTIONS (1)
  - GLOMERULONEPHRITIS MEMBRANOUS [None]
